FAERS Safety Report 22135928 (Version 6)
Quarter: 2024Q2

REPORT INFORMATION
  Report Type: Spontaneous
  Country: US (occurrence: US)
  Receive Date: 20230324
  Receipt Date: 20240530
  Transmission Date: 20240716
  Serious: No
  Sender: FDA-Public Use
  Company Number: US-THERATECHNOLOGIES INC.-2023-THE-TES-000067

PATIENT

DRUGS (1)
  1. EGRIFTA SV [Suspect]
     Active Substance: TESAMORELIN ACETATE
     Indication: Lipodystrophy acquired
     Dosage: 1.4 MG (0.35 ML), QD
     Route: 058
     Dates: start: 20230214

REACTIONS (12)
  - Vision blurred [Recovering/Resolving]
  - Feeling abnormal [Unknown]
  - Hot flush [Recovering/Resolving]
  - Abnormal dreams [Recovering/Resolving]
  - Pain [Unknown]
  - Night sweats [Unknown]
  - Arthralgia [Recovering/Resolving]
  - Injection site pain [Recovering/Resolving]
  - Injection site pruritus [Recovering/Resolving]
  - Incorrect dose administered [Recovering/Resolving]
  - Drug effect less than expected [Not Recovered/Not Resolved]
  - Therapeutic product effect decreased [Not Recovered/Not Resolved]

NARRATIVE: CASE EVENT DATE: 20230301
